FAERS Safety Report 17558362 (Version 2)
Quarter: 2020Q2

REPORT INFORMATION
  Report Type: Report from Study
  Country: CA (occurrence: CA)
  Receive Date: 20200318
  Receipt Date: 20200412
  Transmission Date: 20200713
  Serious: Yes (Other)
  Sender: FDA-Public Use
  Company Number: CA-NALPROPION PHARMACEUTICALS INC.-2020-009696

PATIENT

DRUGS (9)
  1. TRAZODONE [Concomitant]
     Active Substance: TRAZODONE HYDROCHLORIDE
     Indication: INSOMNIA
     Dosage: 150 (UNSPECIFIED UNIT), HS (AT BED TIME)
     Route: 048
  2. CONTRAVE [Suspect]
     Active Substance: BUPROPION HYDROCHLORIDE\NALTREXONE HYDROCHLORIDE
     Dosage: 90 MG/8 MG, (1 TAB IN THE MORNING, 1 TAB IN THE EVENING), END DATE: 2 WEEKS AGO FROM 30/MAR/2020
     Route: 048
     Dates: start: 20200209, end: 202003
  3. CONTRAVE [Suspect]
     Active Substance: BUPROPION HYDROCHLORIDE\NALTREXONE HYDROCHLORIDE
     Dosage: 90 MG/8 MG, (1 TABLET IN THE MORNING AND 1 TABLET IN THE EVENING)
     Route: 048
     Dates: start: 20200126, end: 20200201
  4. VENTOLIN [Concomitant]
     Active Substance: ALBUTEROL SULFATE
     Indication: ASTHMA
     Dosage: 1-2 PUFFS, Q4H PRN (EVERY 4 HOURS AS PER NEEDED) ROUTE: INHALATION
     Route: 050
  5. FLOVENT [Concomitant]
     Active Substance: FLUTICASONE PROPIONATE
     Indication: ASTHMA
     Dosage: 1-2 PUFFS (2 IN 1 D) ROUTE: INHALATION
     Route: 050
  6. CONTRAVE [Suspect]
     Active Substance: BUPROPION HYDROCHLORIDE\NALTREXONE HYDROCHLORIDE
     Indication: WEIGHT CONTROL
     Dosage: 90 MG/8 MG, STARTED ON APPROXIMATELY 19/JAN/2020 (1 TABLET IN THE MORNING)
     Route: 048
     Dates: start: 202001, end: 20200125
  7. PREGABALIN. [Suspect]
     Active Substance: PREGABALIN
     Indication: NEURALGIA
     Dosage: FOR ABOUT 3-4 DAYS
     Route: 065
  8. PREDNISONE. [Suspect]
     Active Substance: PREDNISONE
     Indication: PNEUMONIA
     Dosage: DAILY
     Route: 048
     Dates: start: 20200217, end: 20200220
  9. CONTRAVE [Suspect]
     Active Substance: BUPROPION HYDROCHLORIDE\NALTREXONE HYDROCHLORIDE
     Dosage: 90 MG/8 MG, (1 TABLET IN THE MORNING AND 1 TABLET IN THE EVENING)
     Route: 048
     Dates: start: 20200202, end: 20200208

REACTIONS (14)
  - Bronchitis [Recovering/Resolving]
  - Mood altered [Not Recovered/Not Resolved]
  - Irritability [Recovering/Resolving]
  - Abdominal pain upper [Recovered/Resolved]
  - Respiration abnormal [Recovered/Resolved]
  - Pneumonia [Unknown]
  - Neuralgia [Unknown]
  - Flatulence [Recovered/Resolved]
  - Malaise [Unknown]
  - Product prescribing error [Unknown]
  - Discomfort [Recovered/Resolved]
  - Weight increased [Unknown]
  - Drug titration error [Unknown]
  - Agitation [Recovering/Resolving]

NARRATIVE: CASE EVENT DATE: 202002
